FAERS Safety Report 10595509 (Version 1)
Quarter: 2014Q4

REPORT INFORMATION
  Report Type: Spontaneous
  Country: US (occurrence: US)
  Receive Date: 20141120
  Receipt Date: 20141120
  Transmission Date: 20150529
  Serious: No
  Sender: FDA-Public Use
  Company Number: US-PFIZER INC-2014314849

PATIENT
  Age: 45 Year
  Sex: Female
  Weight: 66 kg

DRUGS (1)
  1. ADVIL [Suspect]
     Active Substance: IBUPROFEN
     Indication: BACK PAIN
     Dosage: 200 MG, SINGLE
     Dates: start: 201408, end: 201408

REACTIONS (6)
  - Reaction to drug excipients [Unknown]
  - Dizziness [Unknown]
  - Skin burning sensation [Unknown]
  - Visual impairment [Unknown]
  - Tongue pruritus [Unknown]
  - Cold sweat [Unknown]

NARRATIVE: CASE EVENT DATE: 2014
